FAERS Safety Report 15722618 (Version 2)
Quarter: 2019Q1

REPORT INFORMATION
  Report Type: Spontaneous
  Country: US (occurrence: US)
  Receive Date: 20181214
  Receipt Date: 20190110
  Transmission Date: 20190417
  Serious: Yes (Other)
  Sender: FDA-Public Use
  Company Number: PHEH2018US052345

PATIENT
  Age: 72 Year
  Sex: Female
  Weight: 63.5 kg

DRUGS (1)
  1. RECLAST [Suspect]
     Active Substance: ZOLEDRONIC ACID
     Indication: OSTEOPOROSIS
     Dosage: UNK UNK, ONCE/SINGLE
     Route: 042
     Dates: start: 20180704

REACTIONS (10)
  - Feeling abnormal [Recovered/Resolved]
  - Vision blurred [Unknown]
  - Transient ischaemic attack [Recovered/Resolved]
  - Tunnel vision [Recovered/Resolved]
  - Periorbital cellulitis [Recovered/Resolved]
  - Tremor [Recovered/Resolved]
  - Oscillopsia [Recovered/Resolved]
  - Influenza like illness [Recovered/Resolved]
  - Eye swelling [Recovered/Resolved]
  - Transient ischaemic attack [Recovered/Resolved]

NARRATIVE: CASE EVENT DATE: 20180705
